FAERS Safety Report 4715494-1 (Version None)
Quarter: 2005Q3

REPORT INFORMATION
  Report Type: 
  Country: None (occurrence: None)
  Receive Date: 20050713
  Receipt Date: 20050701
  Transmission Date: 20060218
  Serious: Yes (Hospitalization, Other)
  Sender: FDA-Public Use
  Company Number: KII-2005-0017291

PATIENT
  Age: 20 Year
  Sex: Male

DRUGS (1)
  1. OXYCONTIN [Suspect]
     Indication: DRUG USE FOR UNKNOWN INDICATION
     Dosage: ORAL
     Route: 048

REACTIONS (29)
  - ALANINE AMINOTRANSFERASE INCREASED [None]
  - ANION GAP INCREASED [None]
  - ANOXIA [None]
  - APALLIC SYNDROME [None]
  - ASPARTATE AMINOTRANSFERASE INCREASED [None]
  - ASPIRATION [None]
  - BLOOD CREATINE PHOSPHOKINASE INCREASED [None]
  - BLOOD GLUCOSE INCREASED [None]
  - BLOOD POTASSIUM INCREASED [None]
  - BODY TEMPERATURE INCREASED [None]
  - BRAIN OEDEMA [None]
  - CEREBRAL INFARCTION [None]
  - COMA [None]
  - ELECTROENCEPHALOGRAM ABNORMAL [None]
  - HYPOTENSION [None]
  - LIVER FUNCTION TEST ABNORMAL [None]
  - METABOLIC ACIDOSIS [None]
  - MIOSIS [None]
  - OVERDOSE [None]
  - POSTURING [None]
  - PUPILLARY REFLEX IMPAIRED [None]
  - RALES [None]
  - RENAL FAILURE [None]
  - RHONCHI [None]
  - SINUS TACHYCARDIA [None]
  - TROPONIN INCREASED [None]
  - URINE ABNORMALITY [None]
  - VOMITING [None]
  - WHITE BLOOD CELL COUNT INCREASED [None]
